FAERS Safety Report 4672950-2 (Version None)
Quarter: 2005Q2

REPORT INFORMATION
  Report Type: 
  Country: None (occurrence: None)
  Receive Date: 20050524
  Receipt Date: 20050401
  Transmission Date: 20051028
  Serious: Yes (Disabling)
  Sender: FDA-Public Use
  Company Number: US-MERCK-0504USA00275

PATIENT
  Age: 75 Year
  Sex: Female

DRUGS (8)
  1. ZETIA [Suspect]
     Indication: BLOOD CHOLESTEROL INCREASED
     Route: 048
     Dates: start: 20040401
  2. LIPITOR [Concomitant]
     Route: 065
  3. IMDUR [Concomitant]
     Route: 065
  4. LASIX [Concomitant]
     Route: 065
  5. METOLAZONE [Concomitant]
     Route: 065
  6. COUMADIN [Concomitant]
     Route: 065
  7. ZOLOFT [Concomitant]
     Route: 065
  8. HYDRALAZINE [Concomitant]
     Route: 065

REACTIONS (1)
  - MUSCLE SPASMS [None]
